FAERS Safety Report 18239055 (Version 1)
Quarter: 2020Q3

REPORT INFORMATION
  Report Type: Spontaneous
  Country: GB (occurrence: GB)
  Receive Date: 20200907
  Receipt Date: 20200907
  Transmission Date: 20201103
  Serious: Yes (Death, Other)
  Sender: FDA-Public Use
  Company Number: GB-DEXPHARM-20200789

PATIENT
  Age: 56 Year
  Sex: Female
  Weight: 72 kg

DRUGS (21)
  1. VENSIR XL PROLONGED RELEASE [Suspect]
     Active Substance: VENLAFAXINE HYDROCHLORIDE
     Indication: DEPRESSION
     Route: 048
     Dates: start: 20200518
  2. ISOSORBIDE MONONITRATE. [Concomitant]
     Active Substance: ISOSORBIDE MONONITRATE
  3. CLONAZEPAM. [Concomitant]
     Active Substance: CLONAZEPAM
     Dosage: NIGHT
  4. CHLORPROMAZINE. [Concomitant]
     Active Substance: CHLORPROMAZINE
  5. TAPENTADOL [Concomitant]
     Active Substance: TAPENTADOL
  6. METHOCARBAMOL. [Concomitant]
     Active Substance: METHOCARBAMOL
     Dosage: NIGHT
  7. DIAZEPAM. [Concomitant]
     Active Substance: DIAZEPAM
  8. BUSPIRONE [Concomitant]
     Active Substance: BUSPIRONE HYDROCHLORIDE
     Indication: ANXIETY
     Dates: start: 20200501, end: 202005
  9. BENADRYL [Concomitant]
     Active Substance: DIPHENHYDRAMINE HYDROCHLORIDE
  10. MEBEVERINE HYDROCHLORIDE [Concomitant]
     Active Substance: MEBEVERINE HYDROCHLORIDE
  11. OMEPRAZOLE. [Concomitant]
     Active Substance: OMEPRAZOLE
  12. MIRTAZAPINE. [Concomitant]
     Active Substance: MIRTAZAPINE
     Dosage: NIGHT
  13. AMITRIPTYLINE [Concomitant]
     Active Substance: AMITRIPTYLINE
     Dosage: NIGHT
  14. SOLIFENACIN [Concomitant]
     Active Substance: SOLIFENACIN
  15. ATORVASTATIN [Concomitant]
     Active Substance: ATORVASTATIN
  16. PARACETAMOL [Concomitant]
     Active Substance: ACETAMINOPHEN
     Dosage: EVERY 5?6 HOURS
  17. ACETYLSALICYLIC ACID [Concomitant]
     Active Substance: ASPIRIN
  18. TOPIRAMATE. [Concomitant]
     Active Substance: TOPIRAMATE
  19. BISOPROLOL [Concomitant]
     Active Substance: BISOPROLOL
  20. GABAPENTIN. [Concomitant]
     Active Substance: GABAPENTIN
     Dosage: 300MG TWICE DAILY AND 600MG AT NIGHT
  21. PROPRANOLOL [Concomitant]
     Active Substance: PROPRANOLOL HYDROCHLORIDE
     Dates: start: 20200506

REACTIONS (1)
  - Death [Fatal]
